FAERS Safety Report 4627171-6 (Version None)
Quarter: 2005Q1

REPORT INFORMATION
  Report Type: 
  Country: None (occurrence: None)
  Receive Date: 20050330
  Receipt Date: 20050314
  Transmission Date: 20050727
  Serious: Yes (Death)
  Sender: FDA-Public Use
  Company Number: 2005-UK-00089UK

PATIENT
  Sex: Female

DRUGS (9)
  1. ATROVENT [Suspect]
     Indication: CHRONIC OBSTRUCTIVE PULMONARY DISEASE
     Dosage: FOUR TIMES A DAY (500 MCG, FOUR TIMES A DAY) IH
     Route: 055
  2. SALBUTAMOL CFC-FREE INHALER (SALBUTAMOL) (NR) [Concomitant]
  3. SALBUTAMOL NEBULISER SOLUTION (SALBUTAMOL) (LO) [Concomitant]
  4. AMINOPHYLLINE (AMINOPHYLLINE) (TA) [Concomitant]
  5. LEVOFLOXACIN [Concomitant]
  6. PREDNISOLONE (PREDNISOLONE) (TA) [Concomitant]
  7. FUROSEMIDE [Concomitant]
  8. CARBOCISTEINE (CARBOCISTEINE) (KA) [Concomitant]
  9. TRAMADOL HYDROCHLORIDE (TRAMADOL HYDROCHLORIDE) (KA) [Concomitant]

REACTIONS (1)
  - CHRONIC OBSTRUCTIVE AIRWAYS DISEASE EXACERBATED [None]
